FAERS Safety Report 8173258-3 (Version None)
Quarter: 2012Q1

REPORT INFORMATION
  Report Type: 
  Country: None (occurrence: None)
  Receive Date: 20120229
  Receipt Date: 20120221
  Transmission Date: 20120608
  Serious: Yes (Other)
  Sender: FDA-Public Use
  Company Number: US-JNJFOC-20111108171

PATIENT
  Sex: Female
  Weight: 52.16 kg

DRUGS (11)
  1. REMICADE [Suspect]
     Route: 042
     Dates: start: 20110531, end: 20110701
  2. REMICADE [Suspect]
     Route: 042
     Dates: start: 20100101
  3. REMICADE [Suspect]
     Route: 042
     Dates: start: 20101122
  4. REMICADE [Suspect]
     Route: 042
     Dates: start: 20110131
  5. CHOLESTEROL LOWERING DRUG, NOS [Concomitant]
     Indication: BLOOD CHOLESTEROL INCREASED
     Dates: start: 20050101
  6. REMICADE [Suspect]
     Route: 042
     Dates: start: 20110328
  7. REMICADE [Suspect]
     Route: 042
     Dates: start: 20100101
  8. SYNTHROID [Concomitant]
     Indication: HYPOTHYROIDISM
  9. REMICADE [Suspect]
     Indication: CROHN'S DISEASE
     Route: 042
     Dates: start: 20101220
  10. REMICADE [Suspect]
     Route: 042
     Dates: start: 20101108
  11. PREDNISONE [Concomitant]

REACTIONS (2)
  - ARTHRITIS [None]
  - URTICARIA [None]
